FAERS Safety Report 8400356-9 (Version None)
Quarter: 2012Q2

REPORT INFORMATION
  Report Type: 
  Country: None (occurrence: None)
  Receive Date: 20120531
  Receipt Date: 20120521
  Transmission Date: 20120825
  Serious: Yes (Other)
  Sender: FDA-Public Use
  Company Number: US-BAXTER-2012BAX007018

PATIENT
  Age: 43 Year
  Sex: Female

DRUGS (2)
  1. NITROGLYCERIN IN DEXTROSE 5% [Suspect]
     Indication: PRINZMETAL ANGINA
     Route: 042
  2. VERAPAMIL HCL [Concomitant]
     Indication: PRINZMETAL ANGINA

REACTIONS (1)
  - CLUSTER HEADACHE [None]
